FAERS Safety Report 5527674-6 (Version None)
Quarter: 2007Q4

REPORT INFORMATION
  Report Type: 
  Country: None (occurrence: None)
  Receive Date: 20071128
  Receipt Date: 20071115
  Transmission Date: 20080405
  Serious: Yes (Other)
  Sender: FDA-Public Use
  Company Number: GB-AMGEN-UK253165

PATIENT
  Age: 55 Year
  Sex: Male
  Weight: 82 kg

DRUGS (7)
  1. MIMPARA [Suspect]
     Indication: PRE-EXISTING DISEASE
     Route: 048
     Dates: end: 20071023
  2. BISOPROLOL FUMARATE [Concomitant]
     Route: 048
  3. CLOPIDOGREL [Concomitant]
     Route: 048
  4. ISOSORBIDE MONONITRATE [Concomitant]
  5. NICORANDIL [Concomitant]
     Route: 048
  6. RANITIDINE HCL [Concomitant]
     Route: 048
  7. LANTHANUM CARBONATE [Concomitant]
     Dates: end: 20070901

REACTIONS (2)
  - PRURITUS GENERALISED [None]
  - SKIN EXFOLIATION [None]
